FAERS Safety Report 7440577-5 (Version None)
Quarter: 2011Q2

REPORT INFORMATION
  Report Type: 
  Country: None (occurrence: None)
  Receive Date: 20110427
  Receipt Date: 20101116
  Transmission Date: 20111010
  Serious: Yes (Hospitalization)
  Sender: FDA-Public Use
  Company Number: B0684980A

PATIENT
  Age: 63 Year
  Sex: Female
  Weight: 41 kg

DRUGS (21)
  1. MAXIPIME [Concomitant]
     Dosage: 4G PER DAY
     Route: 042
     Dates: start: 20090302, end: 20090304
  2. OMEPRAL [Concomitant]
     Dosage: 40MG PER DAY
     Route: 042
     Dates: start: 20090305, end: 20090310
  3. ONEALFA [Concomitant]
     Dosage: 1MG PER DAY
     Route: 048
     Dates: start: 20090224, end: 20090508
  4. ZOVIRAX [Concomitant]
     Dosage: 2.5G PER DAY
     Route: 048
     Dates: start: 20090227, end: 20090410
  5. ITRIZOLE [Concomitant]
     Dosage: 200MG PER DAY
     Route: 048
     Dates: start: 20090227, end: 20090410
  6. ALKERAN [Suspect]
     Indication: STEM CELL TRANSPLANT
     Dosage: 120MG PER DAY
     Route: 042
     Dates: start: 20090224, end: 20090225
  7. AMIKACIN SULFATE [Concomitant]
     Dosage: 200MG PER DAY
     Dates: start: 20090305, end: 20090305
  8. OMEGACIN [Concomitant]
     Dosage: 1.2G PER DAY
     Route: 042
     Dates: start: 20090306, end: 20090313
  9. DOGMATYL [Concomitant]
     Dosage: 150MG PER DAY
     Route: 048
     Dates: start: 20090224, end: 20090508
  10. CIPROFLOXACIN HCL [Concomitant]
     Dosage: 300MG PER DAY
     Route: 042
     Dates: start: 20090306, end: 20090311
  11. SLOW-K [Concomitant]
     Dosage: 1200MG PER DAY
     Route: 048
     Dates: start: 20090224, end: 20090508
  12. BIO THREE [Concomitant]
     Dosage: 3G PER DAY
     Route: 048
     Dates: start: 20090227, end: 20090410
  13. VANCOMYCIN [Concomitant]
     Dosage: 2G PER DAY
     Route: 042
     Dates: start: 20090306, end: 20090318
  14. VICCLOX [Concomitant]
     Dosage: 500MG PER DAY
     Route: 042
     Dates: start: 20090306, end: 20090312
  15. MEROPENEM [Concomitant]
     Dosage: 2G PER DAY
     Route: 042
     Dates: start: 20090305, end: 20090305
  16. TAKEPRON [Concomitant]
     Dosage: 30MG PER DAY
     Route: 048
     Dates: start: 20090224, end: 20090227
  17. THEOLONG [Concomitant]
     Dosage: 400MG PER DAY
     Route: 048
     Dates: start: 20090224, end: 20090508
  18. ALEVIATIN [Concomitant]
     Dosage: 250MG PER DAY
     Route: 042
     Dates: start: 20090223, end: 20090226
  19. GLAKAY [Concomitant]
     Dosage: 45MG PER DAY
     Route: 048
     Dates: start: 20090224, end: 20090508
  20. GRAN [Concomitant]
     Dates: start: 20090227, end: 20090310
  21. BENAMBAX [Concomitant]
     Dosage: 160MG PER DAY
     Dates: start: 20090317, end: 20090317

REACTIONS (2)
  - FEBRILE NEUTROPENIA [None]
  - TREMOR [None]
